FAERS Safety Report 13069116 (Version 5)
Quarter: 2018Q4

REPORT INFORMATION
  Report Type: Spontaneous
  Country: US (occurrence: US)
  Receive Date: 20161228
  Receipt Date: 20181119
  Transmission Date: 20190204
  Serious: Yes (Hospitalization)
  Sender: FDA-Public Use
  Company Number: US-PFIZER INC-2016587388

PATIENT
  Age: 79 Year
  Sex: Female
  Weight: 94 kg

DRUGS (3)
  1. IBRANCE [Suspect]
     Active Substance: PALBOCICLIB
     Indication: BREAST CANCER
     Dosage: 125 MG, CYCLIC (DAYS 1-21 Q 28 DAYS)
     Route: 048
     Dates: start: 20161202
  2. IBRANCE [Suspect]
     Active Substance: PALBOCICLIB
     Dosage: 75 MG, CYCLIC (DAILY X 21 DAYS, 7 DAYS OFF)
     Route: 048
     Dates: start: 20161202, end: 201811
  3. IBRANCE [Suspect]
     Active Substance: PALBOCICLIB
     Dosage: 100 MG, CYCLIC (D1-21 Q 28 DAYS)
     Route: 048
     Dates: start: 20161202

REACTIONS (8)
  - Pneumonia [Unknown]
  - Pain in extremity [Unknown]
  - Dysstasia [Unknown]
  - Fatigue [Unknown]
  - Haemoglobin decreased [Unknown]
  - Bone pain [Unknown]
  - White blood cell count decreased [Unknown]
  - Arthritis [Unknown]

NARRATIVE: CASE EVENT DATE: 2016
